FAERS Safety Report 9242612 (Version 1)
Quarter: 2013Q2

REPORT INFORMATION
  Report Type: Spontaneous
  Country: US (occurrence: US)
  Receive Date: 20130419
  Receipt Date: 20130419
  Transmission Date: 20140414
  Serious: Yes (Other)
  Sender: FDA-Public Use
  Company Number: US-TEVA-381026USA

PATIENT
  Age: 66 Year
  Sex: Male

DRUGS (1)
  1. CLONIDINE [Suspect]
     Indication: PROPHYLAXIS
     Dosage: TOOK DRUG FOR 1.5 WKS
     Route: 062

REACTIONS (1)
  - Hypertensive crisis [Recovered/Resolved]
